FAERS Safety Report 26219159 (Version 1)
Quarter: 2025Q4

REPORT INFORMATION
  Report Type: Spontaneous
  Country: PA (occurrence: PA)
  Receive Date: 20251231
  Receipt Date: 20251231
  Transmission Date: 20260118
  Serious: Yes (Other)
  Sender: SANDOZ
  Company Number: PA-002147023-NVSC2025PA181228

PATIENT
  Sex: Female
  Weight: 68 kg

DRUGS (38)
  1. ANASTROZOLE [Suspect]
     Active Substance: ANASTROZOLE
     Indication: Breast cancer
     Dosage: 1 DOSAGE FORM, QD (EVERY 24 HOUR)
     Dates: start: 202101
  2. ANASTROZOLE [Suspect]
     Active Substance: ANASTROZOLE
     Dosage: UNK
  3. KISQALI [Suspect]
     Active Substance: RIBOCICLIB SUCCINATE
     Indication: Breast cancer
     Dosage: 400 MG, QD
     Dates: start: 202201
  4. KISQALI [Suspect]
     Active Substance: RIBOCICLIB SUCCINATE
     Dosage: 400 MG, QD
     Dates: start: 202201
  5. KISQALI [Suspect]
     Active Substance: RIBOCICLIB SUCCINATE
     Dosage: 200 MG, QD
     Dates: start: 20211106
  6. KISQALI [Suspect]
     Active Substance: RIBOCICLIB SUCCINATE
     Dosage: 400 MG, QD (2TABLETS)
     Dates: start: 202201
  7. KISQALI [Suspect]
     Active Substance: RIBOCICLIB SUCCINATE
     Dosage: 600 MG, QD (3 (600MG)
     Dates: start: 202201
  8. KISQALI [Suspect]
     Active Substance: RIBOCICLIB SUCCINATE
     Dosage: 200 MG, QD
  9. KISQALI [Suspect]
     Active Substance: RIBOCICLIB SUCCINATE
     Dosage: 600 MG, QD (3 (600MG)
     Dates: start: 20210520, end: 20220203
  10. KISQALI [Suspect]
     Active Substance: RIBOCICLIB SUCCINATE
     Dosage: 400 MG, QD
     Dates: start: 202201
  11. KISQALI [Suspect]
     Active Substance: RIBOCICLIB SUCCINATE
     Dosage: 600 MG, QD (3 (600MG)
     Dates: start: 20210520, end: 20220203
  12. KISQALI [Suspect]
     Active Substance: RIBOCICLIB SUCCINATE
     Dosage: 400 MG, QD
     Dates: start: 20210520, end: 20220203
  13. KISQALI [Suspect]
     Active Substance: RIBOCICLIB SUCCINATE
     Dosage: 400 MG, QD
     Dates: start: 20210520, end: 20220203
  14. KISQALI [Suspect]
     Active Substance: RIBOCICLIB SUCCINATE
     Dosage: 1 DOSAGE FORM, QD (1 TABLET, DAILY)
  15. KISQALI [Suspect]
     Active Substance: RIBOCICLIB SUCCINATE
     Dosage: 200 MG, QD
  16. KISQALI [Suspect]
     Active Substance: RIBOCICLIB SUCCINATE
     Dosage: 200 MG, QD (1X 200 MG)
  17. KISQALI [Suspect]
     Active Substance: RIBOCICLIB SUCCINATE
     Dosage: 200 MG, QD
  18. Meticel [Concomitant]
     Indication: Product used for unknown indication
  19. LEVOTHYROXINE [Concomitant]
     Active Substance: LEVOTHYROXINE
     Indication: Hypothyroidism
     Dosage: 0.5 MG, QD
  20. LEVOTHYROXINE [Concomitant]
     Active Substance: LEVOTHYROXINE
     Dosage: 0.1 MG, QD (START DATE: 22 YEARS AGO APPROXIMATELY)
  21. LEVOTHYROXINE [Concomitant]
     Active Substance: LEVOTHYROXINE
     Dosage: 0.1 MG, QD (START DATE: 22 YEARS AGO APPROXIMATELY)
  22. SIMVASTATIN [Concomitant]
     Active Substance: SIMVASTATIN
     Indication: Blood cholesterol
     Dosage: 2 DOSAGE FORM, QHS
  23. SIMVASTATIN [Concomitant]
     Active Substance: SIMVASTATIN
     Dosage: 20 MG, QD (START DATE: 22 YEARS AGO APPROXIMATELY)
  24. INDAPAMIDE [Concomitant]
     Active Substance: INDAPAMIDE
     Indication: Hypertension
     Dosage: 1.5 MG, QD (START DATE: 9 OR 10 YEARS AGO APPROXIMATELY)
  25. INDAPAMIDE [Concomitant]
     Active Substance: INDAPAMIDE
     Dosage: 1.5 MG, QD (A DAY)
  26. PERINDOPRIL [Concomitant]
     Active Substance: PERINDOPRIL
     Indication: Hypertension
     Dosage: UNK, QD (START DATE: 4 YEARS AGO APPROXIMATELY, 1 OF 5 MG)
  27. PERINDOPRIL [Concomitant]
     Active Substance: PERINDOPRIL
     Dosage: 5 MG, QD (AT NIGHT)
  28. DIABETEX [Concomitant]
     Indication: Product used for unknown indication
     Dosage: UNK
  29. Trigentax [Concomitant]
     Indication: Product used for unknown indication
  30. BETAMETHASONE [Concomitant]
     Active Substance: BETAMETHASONE
     Indication: Product used for unknown indication
  31. CHLORPHENIRAMINE MALEATE [Concomitant]
     Active Substance: CHLORPHENIRAMINE MALEATE
     Indication: Product used for unknown indication
  32. PREDNISOLONE [Concomitant]
     Active Substance: PREDNISOLONE
     Indication: Product used for unknown indication
  33. EXEMESTANE [Concomitant]
     Active Substance: EXEMESTANE
     Indication: Breast cancer
  34. CALCIUM\CHOLECALCIFEROL [Concomitant]
     Active Substance: CALCIUM\CHOLECALCIFEROL
     Indication: Product used for unknown indication
     Dosage: 1200 MG, QD
     Dates: start: 202101
  35. MAGNESIUM CITRATE [Concomitant]
     Active Substance: MAGNESIUM CITRATE
     Indication: Product used for unknown indication
     Dosage: 200 MG, BID
     Dates: start: 202101
  36. CABERGOLINE [Concomitant]
     Active Substance: CABERGOLINE
     Indication: Product used for unknown indication
     Dosage: UNK (EVERY 10 DAYS) (1)
  37. CABERGOLINE [Concomitant]
     Active Substance: CABERGOLINE
     Dosage: 0.5 MG, QD (EVERY 10 DAYS)
  38. FOLIC ACID\VITAMINS [Concomitant]
     Active Substance: FOLIC ACID\VITAMINS
     Indication: Product used for unknown indication
     Dosage: 5 MG, QD

REACTIONS (67)
  - Cyst [Unknown]
  - Haemorrhage [Unknown]
  - Skin lesion [Unknown]
  - Aphthous ulcer [Recovering/Resolving]
  - Vitiligo [Not Recovered/Not Resolved]
  - Psoriasis [Not Recovered/Not Resolved]
  - Chest pain [Recovered/Resolved]
  - Skin exfoliation [Recovered/Resolved]
  - Malaise [Unknown]
  - Feeling hot [Recovered/Resolved]
  - Radiation injury [Unknown]
  - Skin hyperpigmentation [Unknown]
  - Gastritis [Recovered/Resolved]
  - Eye pruritus [Unknown]
  - Onycholysis [Unknown]
  - Nail disorder [Unknown]
  - Axillary pain [Unknown]
  - Nail discolouration [Unknown]
  - Eye allergy [Not Recovered/Not Resolved]
  - Madarosis [Unknown]
  - Sensitive skin [Unknown]
  - Scab [Unknown]
  - Subcutaneous abscess [Unknown]
  - Hypersensitivity [Not Recovered/Not Resolved]
  - Taste disorder [Unknown]
  - Tooth abscess [Recovering/Resolving]
  - Furuncle [Unknown]
  - Skin depigmentation [Unknown]
  - Acne [Unknown]
  - Soft tissue disorder [Unknown]
  - Excessive granulation tissue [Unknown]
  - Myofascitis [Unknown]
  - Pain [Unknown]
  - Foreign body [Unknown]
  - Abdominal discomfort [Recovering/Resolving]
  - Dysphagia [Unknown]
  - Throat irritation [Recovering/Resolving]
  - Mucosal inflammation [Recovering/Resolving]
  - Dermatitis [Recovering/Resolving]
  - Erythema [Unknown]
  - Abdominal pain upper [Recovered/Resolved]
  - Dry skin [Unknown]
  - Peripheral swelling [Unknown]
  - Pruritus [Unknown]
  - Dizziness [Recovering/Resolving]
  - Nasopharyngitis [Recovered/Resolved]
  - Oropharyngeal pain [Recovering/Resolving]
  - Stomatitis [Recovered/Resolved]
  - Rhinitis [Unknown]
  - Hypophagia [Unknown]
  - Memory impairment [Unknown]
  - Burning sensation [Not Recovered/Not Resolved]
  - Blister [Not Recovered/Not Resolved]
  - Drug intolerance [Unknown]
  - Illness [Unknown]
  - Muscle spasms [Unknown]
  - Cough [Recovered/Resolved]
  - Rash [Recovered/Resolved]
  - Nausea [Recovered/Resolved]
  - Nausea [Recovering/Resolving]
  - Diarrhoea [Recovered/Resolved]
  - Arthralgia [Unknown]
  - Bone pain [Unknown]
  - Rash macular [Unknown]
  - Tendonitis [Unknown]
  - Urticaria [Unknown]
  - Vomiting [Unknown]

NARRATIVE: CASE EVENT DATE: 20210101
